FAERS Safety Report 4864969-3 (Version None)
Quarter: 2005Q4

REPORT INFORMATION
  Report Type: 
  Country: None (occurrence: None)
  Receive Date: 20051223
  Receipt Date: 20051118
  Transmission Date: 20060501
  Serious: Yes (Other)
  Sender: FDA-Public Use
  Company Number: PHEH2005US12746

PATIENT
  Age: 51 Year
  Sex: Female

DRUGS (10)
  1. ZOMETA [Suspect]
     Indication: BREAST CANCER METASTATIC
     Dosage: 4 MG MONTHLY
     Dates: start: 20040601, end: 20050101
  2. ZOMETA [Suspect]
     Dosage: 4 MG EVERY 3 WEEKS
     Dates: start: 20050101, end: 20051101
  3. HERCEPTIN [Concomitant]
     Indication: BREAST CANCER METASTATIC
     Dosage: 132 MG WEEKLY
     Dates: start: 20040601, end: 20050101
  4. ARANESP [Concomitant]
     Indication: ANAEMIA OF CHRONIC DISEASE
     Dosage: 200-300 MG EVERY 3 WEEKS (VARIES)
     Dates: start: 20051001
  5. LISINOPRIL [Concomitant]
     Dosage: 10 MG, QD
  6. HYDROCHLOROTHIAZIDE [Concomitant]
     Dosage: 25 MG, QD
  7. DECADRON [Concomitant]
     Dosage: 10 MG WEEKLY
     Dates: start: 20040601, end: 20041201
  8. TAMOXIFEN [Concomitant]
     Dosage: 20 MG, QD
     Dates: start: 20050601, end: 20050801
  9. TAXOL [Concomitant]
     Dosage: 102 MG WEEKLY
     Dates: start: 20040601, end: 20041201
  10. TYLENOL [Concomitant]
     Dosage: UNK, PRN

REACTIONS (6)
  - ANAEMIA [None]
  - BONE DISORDER [None]
  - ENDODONTIC PROCEDURE [None]
  - IMPAIRED HEALING [None]
  - OSTEONECROSIS [None]
  - TOOTH EXTRACTION [None]
